FAERS Safety Report 4843686-X (Version None)
Quarter: 2005Q4

REPORT INFORMATION
  Report Type: 
  Country: None (occurrence: None)
  Receive Date: 20051202
  Receipt Date: 20051123
  Transmission Date: 20060501
  Serious: Yes (Hospitalization)
  Sender: FDA-Public Use
  Company Number: FR-BRISTOL-MYERS SQUIBB COMPANY-13196340

PATIENT
  Age: 32 Year
  Sex: Female

DRUGS (12)
  1. APROVEL TABS [Suspect]
     Route: 048
     Dates: start: 20050901, end: 20050921
  2. ACUPAN [Suspect]
     Route: 042
     Dates: start: 20050912, end: 20050921
  3. RIVATRIL [Suspect]
     Dates: start: 20050912, end: 20050921
  4. NEURONTIN [Suspect]
     Dates: start: 20050912, end: 20050921
  5. PREVISCAN [Suspect]
     Dates: start: 20050913, end: 20050921
  6. LUTERAN [Concomitant]
  7. AMLOR [Concomitant]
  8. HYZAAR [Concomitant]
     Dates: end: 20050701
  9. EFFERALGAN CODEINE [Concomitant]
     Dates: end: 20050919
  10. EFFERALGAN [Concomitant]
     Dates: end: 20050919
  11. LOW MOLECULAR WEIGHT HEPARINS [Concomitant]
  12. SEVREDOL [Concomitant]
     Dates: end: 20050919

REACTIONS (4)
  - ALANINE AMINOTRANSFERASE INCREASED [None]
  - ASPARTATE AMINOTRANSFERASE INCREASED [None]
  - GAMMA-GLUTAMYLTRANSFERASE INCREASED [None]
  - SKIN NECROSIS [None]
